FAERS Safety Report 5030352-3 (Version None)
Quarter: 2006Q2

REPORT INFORMATION
  Report Type: 
  Country: None (occurrence: None)
  Receive Date: 20060615
  Receipt Date: 20060531
  Transmission Date: 20061013
  Serious: Yes (Death, Hospitalization)
  Sender: FDA-Public Use
  Company Number: COT_0554_2006

PATIENT
  Age: 60 Year
  Sex: Female
  Weight: 57.1532 kg

DRUGS (17)
  1. VENTAVIS [Suspect]
     Indication: PULMONARY HYPERTENSION
     Dosage: 5 MCG 5XD IH
     Route: 055
     Dates: start: 20060322
  2. ALDACTONE [Concomitant]
  3. SILDENAFIL [Concomitant]
  4. ALBUTEROL [Concomitant]
  5. TORSEMIDE [Concomitant]
  6. NEXIUM [Concomitant]
  7. NORVASC [Concomitant]
  8. SPIRIVA [Concomitant]
  9. ALTACE [Concomitant]
  10. LIPITOR [Concomitant]
  11. CENESTIN [Concomitant]
  12. LEXAPRO [Concomitant]
  13. DIGOXIN [Concomitant]
  14. WELLBUTRIN [Concomitant]
  15. COUMADIN [Concomitant]
  16. ZETIA [Concomitant]
  17. ADVAIR DISKUS 100/50 [Concomitant]

REACTIONS (3)
  - CARDIAC VALVE DISEASE [None]
  - CHRONIC OBSTRUCTIVE PULMONARY DISEASE [None]
  - CONDITION AGGRAVATED [None]
